FAERS Safety Report 21007520 (Version 1)
Quarter: 2022Q2

REPORT INFORMATION
  Report Type: Spontaneous
  Country: PL (occurrence: PL)
  Receive Date: 20220626
  Receipt Date: 20220626
  Transmission Date: 20220721
  Serious: Yes (Hospitalization, Disabling, Other)
  Sender: FDA-Public Use
  Company Number: PL-CELGENE-POL-20211205100

PATIENT
  Age: 80 Year
  Sex: Male
  Weight: 62 kg

DRUGS (9)
  1. AZACITIDINE [Suspect]
     Active Substance: AZACITIDINE
     Indication: Myelodysplastic syndrome
     Dosage: 75 MILLIGRAM/SQ. METER
     Route: 058
     Dates: start: 20211122, end: 20211130
  2. VENETOCLAX [Suspect]
     Active Substance: VENETOCLAX
     Indication: Myelodysplastic syndrome
     Dosage: FREQUENCY TEXT: NOT PROVIDED
     Route: 048
  3. METOPROLOL TARTRATE [Concomitant]
     Active Substance: METOPROLOL TARTRATE
     Indication: Atrial fibrillation
     Dosage: 50 MILLIGRAM
     Route: 048
     Dates: start: 202109
  4. TORSEMIDE [Concomitant]
     Active Substance: TORSEMIDE
     Indication: Cardiac failure chronic
     Dosage: 5 MILLIGRAM
     Route: 048
     Dates: start: 20210801
  5. EPLERENONE [Concomitant]
     Active Substance: EPLERENONE
     Indication: Cardiac failure chronic
     Dosage: 25 MILLIGRAM
     Route: 048
     Dates: start: 20210801
  6. FOLIC ACID [Concomitant]
     Active Substance: FOLIC ACID
     Indication: Supportive care
     Route: 048
     Dates: start: 2021
  7. BISEPTOL [Concomitant]
     Active Substance: SULFAMETHOXAZOLE\TRIMETHOPRIM
     Indication: Infection prophylaxis
     Dosage: 960 MILLIGRAM
     Route: 048
     Dates: start: 20211122
  8. OMEPRAZOLE [Concomitant]
     Active Substance: OMEPRAZOLE
     Indication: Hiatus hernia
     Dosage: 20 MILLIGRAM
     Route: 048
     Dates: start: 2016
  9. ACYCLOVIR [Concomitant]
     Active Substance: ACYCLOVIR
     Indication: Infection prophylaxis
     Dosage: 400 MILLIGRAM
     Route: 048
     Dates: start: 20211122

REACTIONS (1)
  - Ischaemic stroke [Not Recovered/Not Resolved]

NARRATIVE: CASE EVENT DATE: 20211203
